FAERS Safety Report 11266174 (Version 2)
Quarter: 2015Q3

REPORT INFORMATION
  Report Type: Spontaneous
  Country: US (occurrence: US)
  Receive Date: 20150713
  Receipt Date: 20150910
  Transmission Date: 20151125
  Serious: Yes (Hospitalization, Other)
  Sender: FDA-Public Use
  Company Number: US-AMGEN-USASP2015049971

PATIENT
  Age: 63 Year
  Sex: Female
  Weight: 117.9 kg

DRUGS (11)
  1. OMEPRAZOLE. [Concomitant]
     Active Substance: OMEPRAZOLE
     Dosage: 40 MG, QD
     Route: 048
  2. LOVASTATIN. [Concomitant]
     Active Substance: LOVASTATIN
     Dosage: 20 MG, QD
     Route: 048
  3. METFORMIN HYDROCHLORIDE. [Concomitant]
     Active Substance: METFORMIN HYDROCHLORIDE
     Dosage: 500 MG, QD
     Route: 048
  4. HYDROCHLOROTHIAZIDE. [Concomitant]
     Active Substance: HYDROCHLOROTHIAZIDE
     Dosage: 25 MG, QD
     Route: 048
  5. TOPROL XL [Concomitant]
     Active Substance: METOPROLOL SUCCINATE
     Dosage: 50 MG, QD
     Route: 048
  6. VITAMIN D3 [Concomitant]
     Active Substance: CHOLECALCIFEROL
     Dosage: 1000 UNK, QD
     Route: 048
  7. AMLODIPINE BESYLATE. [Concomitant]
     Active Substance: AMLODIPINE BESYLATE
     Dosage: 5 MG, QD
     Route: 048
  8. ASPIRIN                            /00002701/ [Concomitant]
     Active Substance: ASPIRIN
     Dosage: 81 MG, QD
     Route: 048
  9. PROLIA [Suspect]
     Active Substance: DENOSUMAB
     Indication: PRODUCT USED FOR UNKNOWN INDICATION
     Dosage: UNK
     Route: 065
  10. BENAZEPRIL HYDROCHLORIDE. [Concomitant]
     Active Substance: BENAZEPRIL HYDROCHLORIDE
     Dosage: 20 MG, QD
     Route: 048
  11. LORATADINE. [Concomitant]
     Active Substance: LORATADINE
     Dosage: 10 MG, QD
     Route: 048

REACTIONS (21)
  - Breast cancer female [Unknown]
  - Sinusitis [Unknown]
  - Osteopenia [Unknown]
  - Nervous system disorder [Unknown]
  - Upper respiratory tract infection [Unknown]
  - Atrial flutter [Unknown]
  - Diverticulum intestinal [Unknown]
  - Endocrine neoplasm [Unknown]
  - Sinus arrhythmia [Unknown]
  - Atrial tachycardia [Unknown]
  - Hypertension [Unknown]
  - Viral infection [Unknown]
  - Sinus bradycardia [Unknown]
  - Ventricular extrasystoles [Unknown]
  - Rhinitis allergic [Unknown]
  - Atrial fibrillation [Unknown]
  - Hyperlipidaemia [Unknown]
  - Obesity [Unknown]
  - Malaise [Unknown]
  - Palpitations [Unknown]
  - Abdominal pain [Unknown]

NARRATIVE: CASE EVENT DATE: 20140207
